FAERS Safety Report 8031768-3 (Version None)
Quarter: 2012Q1

REPORT INFORMATION
  Report Type: 
  Country: None (occurrence: None)
  Receive Date: 20120109
  Receipt Date: 20120104
  Transmission Date: 20120608
  Serious: Yes (Other)
  Sender: FDA-Public Use
  Company Number: GB-PFIZER INC-2012003171

PATIENT
  Age: 53 Year
  Sex: Female
  Weight: 120 kg

DRUGS (9)
  1. DOXAZOSIN [Concomitant]
     Indication: ESSENTIAL HYPERTENSION
     Dosage: UNK
     Route: 048
     Dates: start: 20060904
  2. CYCLIZINE [Concomitant]
     Indication: NAUSEA
     Dosage: UNK
     Route: 048
     Dates: start: 20060509
  3. CYCLIZINE [Concomitant]
     Indication: VOMITING
  4. LEVOTHYROXINE SODIUM [Concomitant]
     Indication: HYPOTHYROIDISM
     Dosage: UNK
     Route: 048
     Dates: start: 19891115, end: 20101011
  5. DESMOPRESSIN [Concomitant]
     Indication: BLOOD ANTIDIURETIC HORMONE DECREASED
     Dosage: UNK
     Dates: start: 19891115
  6. SOMATROPIN [Suspect]
     Dosage: 0.3 MG/24H, 7 INJECTIONS/WEEK
     Dates: start: 20001211
  7. HYDROCORTISONE [Concomitant]
     Indication: BLOOD CORTICOTROPHIN DECREASED
     Dosage: UNK
     Route: 048
     Dates: start: 20011210, end: 20100101
  8. LANSOPRAZOLE [Concomitant]
     Indication: BACTERIAL INFECTION
     Dosage: UNK
     Route: 048
     Dates: start: 20060905
  9. FLUDROCORTISONE [Concomitant]
     Dosage: UNK
     Route: 048
     Dates: start: 20060825

REACTIONS (1)
  - MENINGIOMA [None]
